FAERS Safety Report 5905038-0 (Version None)
Quarter: 2008Q3

REPORT INFORMATION
  Report Type: 
  Country: None (occurrence: None)
  Receive Date: 20080909
  Receipt Date: 20080222
  Transmission Date: 20090109
  Serious: Yes (Death, Hospitalization)
  Sender: FDA-Public Use
  Company Number: 163-20785-07110764

PATIENT
  Age: 62 Year
  Sex: Female

DRUGS (2)
  1. THALOMID [Suspect]
     Indication: MULTIPLE MYELOMA
     Dosage: 200 - 400MG, DAILY, ORAL
     Route: 048
     Dates: start: 20070517, end: 20071001
  2. COUMADIN [Concomitant]

REACTIONS (3)
  - DEATH [None]
  - PNEUMONIA [None]
  - PULMONARY EMBOLISM [None]
